FAERS Safety Report 7032168-5 (Version None)
Quarter: 2010Q4

REPORT INFORMATION
  Report Type: 
  Country: None (occurrence: None)
  Receive Date: 20101007
  Receipt Date: 20100112
  Transmission Date: 20110411
  Serious: Yes (Life-Threatening)
  Sender: FDA-Public Use
  Company Number: IT-BRISTOL-MYERS SQUIBB COMPANY-14933873

PATIENT
  Age: 67 Year
  Sex: Male

DRUGS (8)
  1. CETUXIMAB [Suspect]
     Indication: COLORECTAL CANCER
     Route: 042
     Dates: start: 20091222
  2. IRINOTECAN HCL [Suspect]
     Indication: COLORECTAL CANCER
     Route: 042
     Dates: start: 20091222
  3. LEUCOVORIN CALCIUM [Suspect]
     Indication: COLORECTAL CANCER
     Route: 042
     Dates: start: 20091222
  4. FLUOROURACIL [Suspect]
     Indication: COLORECTAL CANCER
     Dosage: FOR 600MG/M2,DAY 1 AND 2-IV,THERAPY START DATE:22/DEC/09,DURATION:22HRS.
     Route: 040
     Dates: start: 20091222
  5. TAREG [Concomitant]
     Dosage: 1DF=1CAPS
  6. NIMOTOP [Concomitant]
  7. PARIET [Concomitant]
     Dosage: 1DF=1CAPS
  8. CLOTRIMAZOLE [Concomitant]

REACTIONS (2)
  - INTESTINAL OBSTRUCTION [None]
  - PULMONARY EMBOLISM [None]
